FAERS Safety Report 17808450 (Version 1)
Quarter: 2020Q2

REPORT INFORMATION
  Report Type: Spontaneous
  Country: BR (occurrence: BR)
  Receive Date: 20200520
  Receipt Date: 20200520
  Transmission Date: 20200714
  Serious: Yes (Other)
  Sender: FDA-Public Use
  Company Number: BR-EUSA PHARMA (UK) LIMITED-EUSA2578

PATIENT

DRUGS (1)
  1. SYLVANT [Suspect]
     Active Substance: SILTUXIMAB
     Indication: CASTLEMAN^S DISEASE
     Dosage: 1 DOSE
     Route: 042
     Dates: start: 201710, end: 201710

REACTIONS (4)
  - Aplasia [Unknown]
  - Flushing [Unknown]
  - Ischaemic stroke [Recovered/Resolved]
  - Hypertension [Unknown]

NARRATIVE: CASE EVENT DATE: 201710
